FAERS Safety Report 23405001 (Version 1)
Quarter: 2024Q1

REPORT INFORMATION
  Report Type: Spontaneous
  Country: US (occurrence: None)
  Receive Date: 20240112
  Receipt Date: 20240112
  Transmission Date: 20240410
  Serious: Yes (Hospitalization)
  Sender: FDA-Public Use
  Company Number: None

PATIENT
  Age: 67 Year
  Sex: Male

DRUGS (1)
  1. PROCRIT [Suspect]
     Active Substance: ERYTHROPOIETIN
     Indication: Nephrogenic anaemia
     Dosage: OTHER STRENGTH : 20,000 U/ML;?OTHER QUANTITY : 20000 UNIT/ML;?FREQUENCY : EVERY OTHER WEEK;?
     Route: 058
     Dates: start: 20231221

REACTIONS (2)
  - Dyspnoea [None]
  - Infection [None]

NARRATIVE: CASE EVENT DATE: 20240106
